FAERS Safety Report 8176228-4 (Version None)
Quarter: 2012Q1

REPORT INFORMATION
  Report Type: 
  Country: None (occurrence: None)
  Receive Date: 20120301
  Receipt Date: 20120221
  Transmission Date: 20120608
  Serious: Yes (Hospitalization, Other)
  Sender: FDA-Public Use
  Company Number: JP-JNJFOC-20111204980

PATIENT
  Sex: Female
  Weight: 63 kg

DRUGS (4)
  1. REMICADE [Suspect]
     Route: 042
     Dates: start: 20111019
  2. REMICADE [Suspect]
     Indication: PSORIATIC ARTHROPATHY
     Route: 042
     Dates: start: 20110921
  3. RHEUMATREX [Suspect]
     Indication: PSORIASIS
     Route: 048
     Dates: start: 20110907, end: 20111107
  4. REMICADE [Suspect]
     Route: 042
     Dates: start: 20110907

REACTIONS (3)
  - VERTIGO POSITIONAL [None]
  - PNEUMONIA [None]
  - PALPITATIONS [None]
